FAERS Safety Report 6607695-2 (Version None)
Quarter: 2010Q1

REPORT INFORMATION
  Report Type: 
  Country: None (occurrence: None)
  Receive Date: 20100301
  Receipt Date: 20091127
  Transmission Date: 20100710
  Serious: Yes (Death, Hospitalization, Other)
  Sender: FDA-Public Use
  Company Number: CA-ASTRAZENECA-2010SE08337

PATIENT
  Age: 90 Year
  Sex: Female

DRUGS (3)
  1. NEXIUM [Suspect]
     Indication: OESOPHAGEAL DISCOMFORT
     Route: 048
  2. NEXIUM [Suspect]
     Indication: OESOPHAGITIS
     Route: 048
  3. KIONEX [Concomitant]
     Indication: BLOOD POTASSIUM INCREASED

REACTIONS (7)
  - ASTHENIA [None]
  - HAEMORRHOIDS [None]
  - LOWER GASTROINTESTINAL HAEMORRHAGE [None]
  - NAUSEA [None]
  - PNEUMONIA [None]
  - POSTOPERATIVE ADHESION [None]
  - WEIGHT DECREASED [None]
